FAERS Safety Report 4634487-6 (Version None)
Quarter: 2005Q2

REPORT INFORMATION
  Report Type: 
  Country: None (occurrence: None)
  Receive Date: 20050412
  Receipt Date: 20050330
  Transmission Date: 20051028
  Serious: Yes (Death, Hospitalization)
  Sender: FDA-Public Use
  Company Number: HQWYE184418MAR05

PATIENT
  Age: 62 Year
  Sex: Male

DRUGS (3)
  1. RAPAMUNE [Suspect]
     Indication: PROPHYLAXIS AGAINST TRANSPLANT REJECTION
     Dosage: 5 MG 1X PER 1 DAY ORAL
     Route: 048
     Dates: start: 20050314, end: 20050330
  2. MYCOPHENOLATE MOFETIL (MYCOPHENOLATE MOFETIL,) [Suspect]
     Dosage: 2000 MG
  3. ZENAPAX [Concomitant]

REACTIONS (15)
  - ABDOMINAL DISCOMFORT [None]
  - ABDOMINAL HAEMATOMA [None]
  - CLOSTRIDIAL INFECTION [None]
  - COMPLICATIONS OF TRANSPLANTED KIDNEY [None]
  - DEEP VEIN THROMBOSIS [None]
  - DIARRHOEA [None]
  - FUNGAL OESOPHAGITIS [None]
  - MYOCARDIAL INFARCTION [None]
  - PELVIC HAEMATOMA [None]
  - PERITONEAL DIALYSIS [None]
  - RENAL TUBULAR NECROSIS [None]
  - RETROPERITONEAL HAEMORRHAGE [None]
  - SINUS TACHYCARDIA [None]
  - SUBENDOCARDIAL ISCHAEMIA [None]
  - THROMBOCYTOPENIA [None]
